FAERS Safety Report 23308619 (Version 1)
Quarter: 2023Q4

REPORT INFORMATION
  Report Type: Report from Study
  Country: JP (occurrence: JP)
  Receive Date: 20231218
  Receipt Date: 20231218
  Transmission Date: 20240110
  Serious: Yes (Death, Other)
  Sender: FDA-Public Use
  Company Number: JP-ONO-2023JP030948

PATIENT
  Age: 8 Decade
  Sex: Female
  Weight: 54.5 kg

DRUGS (5)
  1. BRAFTOVI [Suspect]
     Active Substance: ENCORAFENIB
     Indication: Colon cancer
     Dosage: 300 MG, EVERYDAY
     Route: 048
     Dates: start: 20221128, end: 20230409
  2. CETUXIMAB [Concomitant]
     Active Substance: CETUXIMAB
     Indication: Colon cancer
     Dosage: 500 MG/M2
     Route: 065
     Dates: start: 20221128, end: 20221128
  3. CETUXIMAB [Concomitant]
     Active Substance: CETUXIMAB
     Dosage: 400 MG/M2
     Route: 065
  4. CETUXIMAB [Concomitant]
     Active Substance: CETUXIMAB
     Dosage: 250 MG/M2
     Route: 065
     Dates: start: 20221205, end: 20221219
  5. CETUXIMAB [Concomitant]
     Active Substance: CETUXIMAB
     Dosage: 500 MG/M2, Q2W
     Route: 065
     Dates: start: 20221226, end: 20230327

REACTIONS (2)
  - Vena cava thrombosis [Fatal]
  - Pulmonary artery thrombosis [Fatal]
